FAERS Safety Report 7211158-3 (Version None)
Quarter: 2010Q4

REPORT INFORMATION
  Report Type: 
  Country: None (occurrence: None)
  Receive Date: 20101223
  Receipt Date: 20101208
  Transmission Date: 20110411
  Serious: Yes (Death)
  Sender: FDA-Public Use
  Company Number: 2010AT000149

PATIENT
  Age: 72 Year
  Sex: Male

DRUGS (6)
  1. DILATRATE-SR [Suspect]
     Dosage: 30 MG QD;
  2. NIFEDIPINE [Suspect]
     Dosage: 15 MG, QD
  3. DILTIAZEM [Suspect]
     Indication: CHEST PAIN
     Dosage: 60 MG, TID; 120 MG, TID;
  4. RANITIDINE [Suspect]
     Dosage: 300 MG,
  5. FUROSEMIDE [Suspect]
     Indication: PULMONARY OEDEMA
     Dosage: 40 MG, QD;
  6. AMILORIDE (AMILORIDE) [Suspect]
     Indication: PULMONARY OEDEMA
     Dosage: 5 MG, QD;

REACTIONS (11)
  - ACIDOSIS [None]
  - CARDIOGENIC SHOCK [None]
  - CARDIOMEGALY [None]
  - CHEST PAIN [None]
  - HYPERKALAEMIA [None]
  - JAUNDICE [None]
  - LIVER INJURY [None]
  - MELAENA [None]
  - PULMONARY OEDEMA [None]
  - RENAL FAILURE ACUTE [None]
  - URTICARIA [None]
